FAERS Safety Report 12429925 (Version 1)
Quarter: 2016Q2

REPORT INFORMATION
  Report Type: Spontaneous
  Country: US (occurrence: US)
  Receive Date: 20160602
  Receipt Date: 20160602
  Transmission Date: 20160815
  Serious: No
  Sender: FDA-Public Use
  Company Number: US-KADMON PHARMACEUTICALS, LLC-KAD201506-001455

PATIENT
  Sex: Female

DRUGS (2)
  1. RIBAVIRIN. [Suspect]
     Active Substance: RIBAVIRIN
     Indication: HEPATITIS C
     Route: 048
  2. INTERFERON [Suspect]
     Active Substance: INTERFERON
     Indication: HEPATITIS C

REACTIONS (9)
  - Nausea [Unknown]
  - Pain [Unknown]
  - Alopecia [Unknown]
  - Headache [Unknown]
  - Pyrexia [Unknown]
  - Treatment failure [Unknown]
  - Depression [Unknown]
  - Fatigue [Unknown]
  - Chills [Unknown]
